FAERS Safety Report 13344937 (Version 1)
Quarter: 2017Q1

REPORT INFORMATION
  Report Type: Spontaneous
  Country: US (occurrence: US)
  Receive Date: 20170316
  Receipt Date: 20170316
  Transmission Date: 20170428
  Serious: Yes (Hospitalization)
  Sender: FDA-Public Use
  Company Number: None

PATIENT
  Age: 67 Year
  Sex: Female
  Weight: 57.6 kg

DRUGS (4)
  1. ABILIFY [Concomitant]
     Active Substance: ARIPIPRAZOLE
  2. SYNTHROID [Concomitant]
     Active Substance: LEVOTHYROXINE SODIUM
  3. ZOLOFT [Concomitant]
     Active Substance: SERTRALINE HYDROCHLORIDE
  4. NITROFURANTOIN. [Suspect]
     Active Substance: NITROFURANTOIN

REACTIONS (3)
  - Malaise [None]
  - Oxygen saturation decreased [None]
  - Dyspnoea [None]

NARRATIVE: CASE EVENT DATE: 20110614
